FAERS Safety Report 10835880 (Version 1)
Quarter: 2015Q1

REPORT INFORMATION
  Report Type: Report from Study
  Country: US (occurrence: US)
  Receive Date: 20150219
  Receipt Date: 20150219
  Transmission Date: 20150721
  Serious: No
  Sender: FDA-Public Use
  Company Number: US-ABBVIE-14P-163-1201782-00

PATIENT
  Age: 51 Year
  Sex: Male

DRUGS (1)
  1. HUMIRA [Suspect]
     Active Substance: ADALIMUMAB
     Indication: PSORIATIC ARTHROPATHY
     Dosage: FIRST DOSE ONLY
     Dates: start: 20140119, end: 20140119

REACTIONS (2)
  - Bronchitis [Not Recovered/Not Resolved]
  - Pleuritic pain [Not Recovered/Not Resolved]

NARRATIVE: CASE EVENT DATE: 20140122
